FAERS Safety Report 16650985 (Version 2)
Quarter: 2021Q4

REPORT INFORMATION
  Report Type: Spontaneous
  Country: IE (occurrence: IE)
  Receive Date: 20190731
  Receipt Date: 20211130
  Transmission Date: 20220303
  Serious: Yes (Death, Other)
  Sender: FDA-Public Use
  Company Number: IE-PFIZER INC-2019321161

PATIENT
  Age: 78 Year
  Sex: Male

DRUGS (1)
  1. ENBREL [Suspect]
     Active Substance: ETANERCEPT
     Indication: Rheumatoid arthritis
     Dosage: UNK
     Route: 058

REACTIONS (2)
  - Death [Fatal]
  - Prostate cancer [Unknown]

NARRATIVE: CASE EVENT DATE: 20211118
